FAERS Safety Report 5458186-6 (Version None)
Quarter: 2007Q3

REPORT INFORMATION
  Report Type: 
  Country: None (occurrence: None)
  Receive Date: 20070917
  Receipt Date: 20070906
  Transmission Date: 20080115
  Serious: Yes (Death)
  Sender: FDA-Public Use
  Company Number: 200709AGG00719

PATIENT
  Age: 88 Year
  Sex: Female
  Weight: 90 kg

DRUGS (5)
  1. AGGRASTAT [Suspect]
     Indication: CARDIAC ENZYMES INCREASED
     Dosage: INTRAVENOUS (NOT OTHWERWISE SPECIFIED))
     Route: 042
  2. ASPIRIN [Concomitant]
  3. CLOPIDOGREL BISULFATE [Concomitant]
  4. METFORMIN [Concomitant]
  5. HEPARIN [Concomitant]

REACTIONS (1)
  - DEATH [None]
